FAERS Safety Report 16690255 (Version 1)
Quarter: 2019Q3

REPORT INFORMATION
  Report Type: Spontaneous
  Country: US (occurrence: US)
  Receive Date: 20190809
  Receipt Date: 20190809
  Transmission Date: 20191004
  Serious: No
  Sender: FDA-Public Use
  Company Number: US-ROCHE-2162147

PATIENT
  Sex: Female
  Weight: 104.42 kg

DRUGS (12)
  1. BIOTIN [Concomitant]
     Active Substance: BIOTIN
     Dosage: ONGOING: YES
     Route: 048
  2. VITAMIN D3 [Concomitant]
     Active Substance: CHOLECALCIFEROL
     Dosage: ONGOING: YES
     Route: 048
  3. VITAMIN E NOS [Concomitant]
     Active Substance: .ALPHA.-TOCOPHEROL
     Dosage: ONGOING: YES
     Route: 048
  4. CRANBERRY [VACCINIUM SPP.] [Concomitant]
     Dosage: ONGOING: YES
     Route: 048
  5. METOPROLOL SUCCINATE. [Concomitant]
     Active Substance: METOPROLOL SUCCINATE
     Dosage: ONGOING: YES
     Route: 048
  6. BONIVA [Suspect]
     Active Substance: IBANDRONATE SODIUM
     Indication: OSTEOPOROSIS
     Route: 048
     Dates: start: 20180510
  7. LOPERAMIDE [Concomitant]
     Active Substance: LOPERAMIDE
     Indication: IRRITABLE BOWEL SYNDROME
     Dosage: ONGOING: YES
     Route: 048
  8. TURMERIC [CURCUMA LONGA] [Concomitant]
     Dosage: ONGOING: YES
     Route: 048
  9. NIACIN. [Concomitant]
     Active Substance: NIACIN
     Dosage: ONGOING: YES
     Route: 048
  10. BENICAR HCT [Concomitant]
     Active Substance: HYDROCHLOROTHIAZIDE\OLMESARTAN MEDOXOMIL
     Dosage: 20-12.5MG ONE EVERY MORNING ;ONGOING: YES
     Route: 048
  11. PAROXETINE. [Concomitant]
     Active Substance: PAROXETINE
     Dosage: ONGOING: YES
     Route: 048
  12. FISH OIL [Concomitant]
     Active Substance: FISH OIL
     Dosage: TAKEN IN THE MORNING AND AT NIGHT ;ONGOING: YES
     Route: 065

REACTIONS (5)
  - Fear [Not Recovered/Not Resolved]
  - Sensory loss [Recovered/Resolved]
  - Panic reaction [Not Recovered/Not Resolved]
  - Limb discomfort [Recovered/Resolved]
  - Dizziness [Unknown]
